FAERS Safety Report 6508014-2 (Version None)
Quarter: 2009Q4

REPORT INFORMATION
  Report Type: 
  Country: None (occurrence: None)
  Receive Date: 20091221
  Receipt Date: 20091210
  Transmission Date: 20100525
  Serious: Yes (Hospitalization)
  Sender: FDA-Public Use
  Company Number: FR-MILLENNIUM PHARMACEUTICALS, INC.-2009-04744

PATIENT

DRUGS (6)
  1. VELCADE [Suspect]
     Indication: MULTIPLE MYELOMA
     Dosage: 2 MG, UNK
     Dates: start: 20091112
  2. DEXAMETHASONE TAB [Concomitant]
     Indication: MULTIPLE MYELOMA
  3. ISOPTIN [Concomitant]
     Indication: TACHYCARDIA PAROXYSMAL
     Dosage: 120 MG, QD
  4. INIPOMP                            /01263201/ [Suspect]
     Dosage: 20 MG, QD
  5. KARDEGIC                           /00002703/ [Suspect]
     Dosage: 75 MG, QD
  6. ELISOR [Suspect]
     Dosage: 20 MG, QD

REACTIONS (2)
  - ILEUS [None]
  - MUSCLE HAEMORRHAGE [None]
